FAERS Safety Report 7637837-1 (Version None)
Quarter: 2011Q3

REPORT INFORMATION
  Report Type: 
  Country: None (occurrence: None)
  Receive Date: 20110727
  Receipt Date: 20110713
  Transmission Date: 20111222
  Serious: Yes (Hospitalization)
  Sender: FDA-Public Use
  Company Number: ES-JNJFOC-20110706213

PATIENT
  Sex: Male

DRUGS (3)
  1. UNKNOWN MEDICATION [Concomitant]
     Indication: CONDUCT DISORDER
     Route: 065
  2. ABIRATERONE ACETATE [Suspect]
     Indication: PROSTATE CANCER METASTATIC
     Route: 048
  3. ABIRATERONE ACETATE [Suspect]
     Route: 048

REACTIONS (1)
  - AGITATION [None]
